FAERS Safety Report 9731892 (Version 3)
Quarter: 2015Q3

REPORT INFORMATION
  Report Type: Report from Study
  Country: CA (occurrence: CA)
  Receive Date: 20131204
  Receipt Date: 20150910
  Transmission Date: 20151125
  Serious: Yes (Hospitalization, Other)
  Sender: FDA-Public Use
  Company Number: PHHY2013CA139523

PATIENT
  Sex: Male

DRUGS (2)
  1. GLEEVEC [Suspect]
     Active Substance: IMATINIB MESYLATE
     Indication: CHRONIC MYELOID LEUKAEMIA
     Dosage: UNK
     Route: 048
     Dates: start: 2002
  2. IMATINIB [Suspect]
     Active Substance: IMATINIB
     Indication: CHRONIC MYELOID LEUKAEMIA
     Dosage: UNK
     Route: 065
     Dates: start: 201310, end: 20131118

REACTIONS (11)
  - Neoplasm [Unknown]
  - Myocardial infarction [Unknown]
  - Dyspnoea [Unknown]
  - Feeling cold [Unknown]
  - Red blood cell count increased [Unknown]
  - Ear congestion [Unknown]
  - Nasal congestion [Unknown]
  - Cold sweat [Unknown]
  - Epistaxis [Unknown]
  - Haemoglobin decreased [Unknown]
  - Malaise [Unknown]

NARRATIVE: CASE EVENT DATE: 2007
